FAERS Safety Report 16919557 (Version 3)
Quarter: 2019Q4

REPORT INFORMATION
  Report Type: Report from Study
  Country: US (occurrence: US)
  Receive Date: 20191015
  Receipt Date: 20191230
  Transmission Date: 20200122
  Serious: Yes (Hospitalization)
  Sender: FDA-Public Use
  Company Number: US-ROCHE-2429959

PATIENT
  Age: 60 Year
  Sex: Female
  Weight: 50.7 kg

DRUGS (3)
  1. CARBOPLATIN. [Suspect]
     Active Substance: CARBOPLATIN
     Indication: NON-SMALL CELL LUNG CANCER
     Dosage: AUC 6?DATE OF MOST RECENT DOSE OF CARBOPLATIN PRIOR TO ADVERSE EVENT: 17/SEP/2019
     Route: 042
     Dates: start: 20190827
  2. PEMETREXED. [Suspect]
     Active Substance: PEMETREXED
     Indication: NON-SMALL CELL LUNG CANCER
     Dosage: 500 MG/M2?DATE OF MOST RECENT DOSE OF PREMETREXED PRIOR TO SAE; 17/SEP/2019
     Route: 042
     Dates: start: 20190827
  3. PIRFENIDONE. [Suspect]
     Active Substance: PIRFENIDONE
     Indication: NON-SMALL CELL LUNG CANCER
     Dosage: ON 17/SEP/2019, RECEIVED THE MOST RECENT DOSE OF PIRFENIDONE
     Route: 065

REACTIONS (4)
  - Anaemia [Unknown]
  - Neutropenia [Unknown]
  - Decreased appetite [Unknown]
  - Thrombocytopenia [Unknown]

NARRATIVE: CASE EVENT DATE: 20190930
